FAERS Safety Report 11107319 (Version 3)
Quarter: 2015Q4

REPORT INFORMATION
  Report Type: Spontaneous
  Country: US (occurrence: US)
  Receive Date: 20150512
  Receipt Date: 20151016
  Transmission Date: 20160304
  Serious: No
  Sender: FDA-Public Use
  Company Number: US-PFIZER INC-2015154816

PATIENT
  Age: 61 Year
  Sex: Female
  Weight: 76 kg

DRUGS (43)
  1. EFFEXOR XR [Concomitant]
     Active Substance: VENLAFAXINE HYDROCHLORIDE
     Dosage: UNK
     Dates: start: 20090428, end: 20120816
  2. DICLOFENAC [Concomitant]
     Active Substance: DICLOFENAC
     Indication: ARTHRITIS
     Dosage: 50 MG, 2X/DAY
     Route: 048
  3. DIVALPROEX SODIUM. [Concomitant]
     Active Substance: DIVALPROEX SODIUM
     Dosage: 250 MG, 2X/DAY (1 TABLET BY MOUTH TWICE DAILY)
     Route: 048
  4. VENTOLIN HFA [Concomitant]
     Active Substance: ALBUTEROL SULFATE
     Dosage: 2 PUFFS BY MOUTH AS NEEDED UP TO FOUR TIMES DAILY (200 METER)
     Route: 055
  5. HYDROCO/APAP [Concomitant]
     Active Substance: ACETAMINOPHEN\HYDROCODONE
     Indication: PAIN
     Dosage: (HYDROCODONE:7.5MG; ACETAMINOPHEN:325MG, 3X/DAY PRN)
     Route: 048
  6. HYDROCO/APAP [Concomitant]
     Active Substance: ACETAMINOPHEN\HYDROCODONE
     Dosage: 1 DF, 3X/DAY (TAKE 1 TABLET BY MOUTH 3 TIMES A DAY AS NEEDED) (HYDROCODONE BITARTRATE:7.5,APAP:500)
     Route: 048
  7. FUROSEMIDE. [Concomitant]
     Active Substance: FUROSEMIDE
     Indication: BLOOD PRESSURE MEASUREMENT
     Dosage: 20 MG, 1X/DAY
     Route: 048
  8. IBUPROFEN. [Concomitant]
     Active Substance: IBUPROFEN
     Indication: PAIN
     Dosage: 600 MG, 2X/DAY AS NEEDED
     Route: 048
  9. TRAZODONE [Concomitant]
     Active Substance: TRAZODONE HYDROCHLORIDE
     Dosage: 100 MG, UNK
  10. SULFAMETHOXAZOLE AND TRIMETHOPRIM [Concomitant]
     Active Substance: SULFAMETHOXAZOLE\TRIMETHOPRIM
     Dosage: 1 TABLET BY MOUTH TWICE DAILY UNTIL ALL TAKEN  (SULFAMETHOXAZOLE:800; TRIMETHOPRIM:160)
     Route: 048
  11. SERTRALINE [Concomitant]
     Active Substance: SERTRALINE HYDROCHLORIDE
     Dosage: 100 MG, UNK
  12. LYRICA [Suspect]
     Active Substance: PREGABALIN
     Indication: NERVE INJURY
     Dosage: 100 MG, 1X/DAY
     Dates: end: 201406
  13. EFFEXOR XR [Concomitant]
     Active Substance: VENLAFAXINE HYDROCHLORIDE
     Dosage: 150 MG, 1X/DAY (TAKE 1 CAPSULE BY MOUTH EVERY MORNING)
     Route: 048
  14. FUROSEMIDE. [Concomitant]
     Active Substance: FUROSEMIDE
     Indication: FLUID IMBALANCE
     Dosage: 20 MG, DAILY AS NEEDED
  15. CEPHALEXIN. [Concomitant]
     Active Substance: CEPHALEXIN
     Dosage: 500 MG, 3X/DAY FOR 7 DAYS
     Route: 048
  16. CYCLOBENZAPRINE [Concomitant]
     Active Substance: CYCLOBENZAPRINE
     Indication: MUSCLE SPASMS
     Dosage: 10 MG, 3X/DAY AS NEEDED
  17. VICODIN [Concomitant]
     Active Substance: ACETAMINOPHEN\HYDROCODONE BITARTRATE
     Indication: ARTHRALGIA
     Dosage: 2 TABLETS OF 7.5 MG DAILY
  18. EFFEXOR XR [Concomitant]
     Active Substance: VENLAFAXINE HYDROCHLORIDE
     Dosage: 225 MG, 1X/DAY (TAKE 3 CAPSULES BY MOUTH EVERY MORNING)
     Route: 048
  19. IOPHEN DM NR [Concomitant]
     Active Substance: DEXTROMETHORPHAN\GUAIFENESIN
     Indication: NASAL CONGESTION
  20. PREMPRO [Concomitant]
     Active Substance: ESTROGENS, CONJUGATED\MEDROXYPROGESTERONE ACETATE
     Dosage: 1 DF, DAILY (ESTROGENS CONJUGATED: 0.45, MEDROXYPROGESTERONE ACETATE: 1.5)
  21. METOCLOPRAM [Concomitant]
     Active Substance: METOCLOPRAMIDE
     Dosage: 10 MG, (TAKE 1 TABLET BY MOUTH BEFORE MEALS + AT BEDTIME)
     Route: 048
  22. LYRICA [Suspect]
     Active Substance: PREGABALIN
     Indication: PAIN
     Dosage: 100 MG, 2X/DAY
     Dates: end: 20140628
  23. LYRICA [Suspect]
     Active Substance: PREGABALIN
     Dosage: 100 MG, 2X/DAY (TK ONE C PO BID PRN)
     Route: 048
  24. EFFEXOR XR [Concomitant]
     Active Substance: VENLAFAXINE HYDROCHLORIDE
     Dosage: 75 MG, DAILY (1 CAPSULE BY MOUTH DAILY)
     Route: 048
  25. CEPHALEXIN. [Concomitant]
     Active Substance: CEPHALEXIN
     Dosage: 500 MG, 4X/DAY FOR 10 DAYS
     Route: 048
  26. CYCLOBENZAPRINE [Concomitant]
     Active Substance: CYCLOBENZAPRINE
     Indication: MUSCULOSKELETAL STIFFNESS
  27. PREMPRO [Concomitant]
     Active Substance: ESTROGENS, CONJUGATED\MEDROXYPROGESTERONE ACETATE
     Dosage: 1 DF, DAILY (ESTROGENS CONJUGATED: 0.3, MEDROXYPROGESTERONE ACETATE: 1.5)
  28. HYDROCHLOROTHIAZIDE. [Concomitant]
     Active Substance: HYDROCHLOROTHIAZIDE
     Indication: BLOOD PRESSURE MEASUREMENT
     Dosage: 25 MG, DAILY
  29. METHYLPRED [Concomitant]
     Active Substance: METHYLPREDNISOLONE
     Dosage: 4 MG, UNK (TAKE AS DIRECTED WITH FOOD)
  30. VICODIN [Concomitant]
     Active Substance: ACETAMINOPHEN\HYDROCODONE BITARTRATE
     Indication: NERVE INJURY
     Dosage: 7.5 MG, 6 X DAY
  31. VICODIN [Concomitant]
     Active Substance: ACETAMINOPHEN\HYDROCODONE BITARTRATE
     Dosage: 7.5 MG, 3X/DAY
  32. CLONAZEPAM. [Concomitant]
     Active Substance: CLONAZEPAM
     Indication: ANXIETY
     Dosage: 0.5 MG, 3X/DAY
     Route: 048
  33. OXYCODONE AND ACETAMINOPHEN [Concomitant]
     Active Substance: ACETAMINOPHEN\OXYCODONE\OXYCODONE HYDROCHLORIDE
     Indication: PAIN
     Dosage: TAKE 1 TABLET BY MOUTH EVERY 6 HOURS AS NEEDED (OXYCODONE HCL: 10MG, APAP: 325MG)
     Route: 048
  34. POLYETH GLYC [Concomitant]
     Active Substance: POLYETHYLENE GLYCOLS
     Dosage: ONE SCOOPFUL DAILY INCREASE TO TWICE DAILY IF NOT BETTER IN ONE WEEK (3350 NF)
  35. CIPROFLOXACIN. [Concomitant]
     Active Substance: CIPROFLOXACIN
     Dosage: 500 MG, UNK
  36. ZOLPIDEM TARTATE [Concomitant]
     Active Substance: ZOLPIDEM TARTRATE
     Dosage: 10 MG, 1X/DAY AT BEDTIME AS NEEDED
  37. VICODIN [Concomitant]
     Active Substance: ACETAMINOPHEN\HYDROCODONE BITARTRATE
     Dosage: 7.5 MG, 1-3 X DAY
     Dates: start: 2008
  38. OMEPRAZOLE. [Concomitant]
     Active Substance: OMEPRAZOLE
     Indication: ABDOMINAL DISCOMFORT
     Dosage: 20 MG, 1X/DAY
     Route: 048
  39. IOPHEN DM NR [Concomitant]
     Active Substance: DEXTROMETHORPHAN\GUAIFENESIN
     Indication: COUGH
     Dosage: 1-2 TEASPOONFUL BY MOUTH EVERY 4 TO 6 HOURS PRN (DM HBR: 100, GUAIFENESIN: 10/5)
     Route: 048
  40. CLONAZEPAM. [Concomitant]
     Active Substance: CLONAZEPAM
     Dosage: 0.5 MG, 3X/DAY AS NEEDED
  41. ZOLPIDEM [Concomitant]
     Active Substance: ZOLPIDEM\ZOLPIDEM TARTRATE
     Dosage: 10 MG, UNK
  42. METRONIDAZOLE VAG [Concomitant]
     Dosage: 0.75 %, 1X/DAY (ONE APPLICATOR AT BEDTIME FOR 5 DAYS)
  43. CLINDAMYCIN [Concomitant]
     Active Substance: CLINDAMYCIN\CLINDAMYCIN PHOSPHATE
     Dosage: 300 MG, 4X/DAY UNTIL ALL TAKEN
     Route: 048

REACTIONS (4)
  - Skin exfoliation [Unknown]
  - Limb discomfort [Recovering/Resolving]
  - Drug ineffective [Not Recovered/Not Resolved]
  - Skin discolouration [Recovering/Resolving]
